FAERS Safety Report 8212124-1 (Version None)
Quarter: 2012Q1

REPORT INFORMATION
  Report Type: 
  Country: None (occurrence: None)
  Receive Date: 20120315
  Receipt Date: 20120313
  Transmission Date: 20120608
  Serious: Yes (Death)
  Sender: FDA-Public Use
  Company Number: PHHY2012DO022556

PATIENT
  Age: 85 Year
  Sex: Male

DRUGS (1)
  1. DIOVAN HCT [Suspect]
     Dosage: 1 DF (320 MG VALSARTAN AND 12.5 MG HYDROCHLOROTHIAZIDE), UNK

REACTIONS (1)
  - DEATH [None]
